FAERS Safety Report 6396890-6 (Version None)
Quarter: 2009Q4

REPORT INFORMATION
  Report Type: 
  Country: None (occurrence: None)
  Receive Date: 20091012
  Receipt Date: 20090803
  Transmission Date: 20100525
  Serious: No
  Sender: FDA-Public Use
  Company Number: US-ASTRAZENECA-2009UW21686

PATIENT
  Age: 67 Year
  Sex: Female
  Weight: 67.1 kg

DRUGS (4)
  1. SYMBICORT [Suspect]
     Indication: CHRONIC OBSTRUCTIVE PULMONARY DISEASE
     Route: 055
     Dates: start: 20090401
  2. TRYLIPITCS [Concomitant]
  3. LORAZEPAM [Concomitant]
  4. EVISTA [Concomitant]

REACTIONS (2)
  - GLOSSODYNIA [None]
  - TREMOR [None]
